FAERS Safety Report 15235528 (Version 1)
Quarter: 2018Q3

REPORT INFORMATION
  Report Type: Spontaneous
  Country: JP (occurrence: JP)
  Receive Date: 20180803
  Receipt Date: 20180803
  Transmission Date: 20181010
  Serious: Yes (Hospitalization)
  Sender: FDA-Public Use
  Company Number: JP-ELI_LILLY_AND_COMPANY-JP201808000054

PATIENT
  Age: 68 Year
  Sex: Male

DRUGS (2)
  1. ZALUTIA 5MG [Suspect]
     Active Substance: TADALAFIL
     Indication: BENIGN PROSTATIC HYPERPLASIA
     Dosage: 5 MG, DAILY
     Route: 048
     Dates: start: 20161129, end: 20180530
  2. AVOLVE [Concomitant]
     Active Substance: DUTASTERIDE
     Dosage: UNK
     Route: 048
     Dates: start: 20170616

REACTIONS (1)
  - Cerebral infarction [Recovered/Resolved]

NARRATIVE: CASE EVENT DATE: 20180530
